FAERS Safety Report 23407179 (Version 2)
Quarter: 2024Q2

REPORT INFORMATION
  Report Type: Spontaneous
  Country: US (occurrence: US)
  Receive Date: 20240116
  Receipt Date: 20240420
  Transmission Date: 20240716
  Serious: Yes (Other)
  Sender: FDA-Public Use
  Company Number: US-BRISTOL-MYERS SQUIBB COMPANY-2024-008001

PATIENT
  Age: 89 Year
  Sex: Female
  Weight: 67.13 kg

DRUGS (4)
  1. REVLIMID [Suspect]
     Active Substance: LENALIDOMIDE
     Indication: Plasma cell myeloma
     Dosage: FREQUENCY: TAKE 1 CAPSULE BY MOUTH ONCE EVERY OTHER DAY FOR 3 WEEKS ON, THEN TAKE 1 WEEK OFF.
     Route: 048
  2. REVLIMID [Suspect]
     Active Substance: LENALIDOMIDE
     Dosage: FREQUENCY: TAKE 1 CAPSULE BY MOUTH ONCE EVERY OTHER DAY FOR 3 WEEKS ON, THEN TAKE 1 WEEK OFF.
     Route: 048
  3. DEXAMETHASONE [Concomitant]
     Active Substance: DEXAMETHASONE
     Indication: Product used for unknown indication
     Dosage: FREQUENCY: TAKE 5 TABLETS ONCE DAILY FOR 4 CONSECUTIVE DAYS
     Route: 048
  4. MONTELUKAST [Concomitant]
     Active Substance: MONTELUKAST SODIUM
     Indication: Product used for unknown indication
     Dosage: FREQUENCY: TAKE 1 TABLET TWICE DAILY FOR 2 DAYS STARTING 1 DAY PRIOR TO INJECTIONS WITH DARATUMUMAB
     Route: 048

REACTIONS (3)
  - Neutropenia [Unknown]
  - Off label use [Unknown]
  - Cytopenia [Not Recovered/Not Resolved]
